FAERS Safety Report 4515115-7 (Version None)
Quarter: 2004Q4

REPORT INFORMATION
  Report Type: 
  Country: None (occurrence: None)
  Receive Date: 20041201
  Receipt Date: 20041117
  Transmission Date: 20050328
  Serious: Yes (Life-Threatening, Hospitalization)
  Sender: FDA-Public Use
  Company Number: PHNR2004AU01663

PATIENT
  Age: 86 Year
  Sex: Female
  Weight: 58 kg

DRUGS (4)
  1. MELLARIL [Suspect]
     Dosage: 25 TO 50 MG/TID
     Dates: start: 19840101, end: 20040101
  2. CIPRAMIL [Suspect]
     Dosage: 20 MG/DAY
  3. TRIAMCINOLONE ACETONIDE [Suspect]
     Dosage: 6 MG/DAY
     Dates: start: 20041112
  4. VISUDYNE (NVO) [Suspect]
     Dosage: UNK, ONCE/SINGLE
     Dates: start: 20041111, end: 20041111

REACTIONS (10)
  - AGITATION [None]
  - CHEMICAL BURN OF SKIN [None]
  - CHEMICAL POISONING [None]
  - DELIRIUM [None]
  - DEPRESSION [None]
  - DRUG WITHDRAWAL SYNDROME [None]
  - OESOPHAGITIS [None]
  - PNEUMONIA ASPIRATION [None]
  - SUICIDE ATTEMPT [None]
  - TRACHEOSTOMY [None]
